FAERS Safety Report 16525168 (Version 1)
Quarter: 2019Q3

REPORT INFORMATION
  Report Type: Spontaneous
  Country: US (occurrence: US)
  Receive Date: 20190703
  Receipt Date: 20190703
  Transmission Date: 20191004
  Serious: Yes (Other)
  Sender: FDA-Public Use
  Company Number: US-PFIZER INC-2019281626

PATIENT

DRUGS (7)
  1. EDLUAR [Suspect]
     Active Substance: ZOLPIDEM TARTRATE
     Dosage: UNK
  2. INTERMEZZO [Suspect]
     Active Substance: ZOLPIDEM TARTRATE
     Dosage: UNK
  3. ZOLPIMIST [Suspect]
     Active Substance: ZOLPIDEM TARTRATE
     Dosage: UNK
  4. LUNESTA [Suspect]
     Active Substance: ESZOPICLONE
     Dosage: UNK
  5. SONATA [Suspect]
     Active Substance: ZALEPLON
     Dosage: UNK
  6. AMBIEN [Suspect]
     Active Substance: ZOLPIDEM TARTRATE
     Dosage: UNK
  7. AMBIEN CR [Suspect]
     Active Substance: ZOLPIDEM TARTRATE
     Dosage: UNK

REACTIONS (9)
  - Somnambulism [Unknown]
  - Accidental overdose [Unknown]
  - Carbon monoxide poisoning [Unknown]
  - Road traffic accident [Unknown]
  - Thermal burn [Unknown]
  - Self-injurious ideation [Unknown]
  - Fall [Unknown]
  - Drowning [Unknown]
  - Hypothermia [Unknown]
